FAERS Safety Report 4818187-5 (Version None)
Quarter: 2005Q4

REPORT INFORMATION
  Report Type: 
  Country: None (occurrence: None)
  Receive Date: 20051031
  Receipt Date: 20051031
  Transmission Date: 20060501
  Serious: Yes (Hospitalization)
  Sender: FDA-Public Use
  Company Number: None

PATIENT
  Age: 40 Year
  Sex: Female
  Weight: 98.8842 kg

DRUGS (1)
  1. LITHIUM [Suspect]
     Dosage: 900 MG PO QHS
     Route: 048

REACTIONS (6)
  - DIARRHOEA [None]
  - DRUG TOXICITY [None]
  - GAIT DISTURBANCE [None]
  - NAUSEA [None]
  - TREMOR [None]
  - VISUAL DISTURBANCE [None]
